FAERS Safety Report 8533383-1 (Version None)
Quarter: 2012Q3

REPORT INFORMATION
  Report Type: 
  Country: None (occurrence: None)
  Receive Date: 20120724
  Receipt Date: 20120718
  Transmission Date: 20120928
  Serious: Yes (Hospitalization, Other)
  Sender: FDA-Public Use
  Company Number: PHHY2012JP050799

PATIENT
  Sex: Female

DRUGS (8)
  1. NEUQUINON [Concomitant]
     Dosage: 30 MG
     Route: 048
     Dates: start: 20111111
  2. ASPIRIN [Suspect]
     Dosage: 100 MG
     Route: 048
     Dates: start: 20101201, end: 20120604
  3. PLAVIX [Suspect]
     Dosage: 75 MG
     Route: 048
     Dates: start: 20120329, end: 20120604
  4. LASIX [Concomitant]
     Dosage: 20 MG
     Route: 048
     Dates: start: 20120425
  5. AVAPRO [Concomitant]
     Dosage: 200 MG
     Route: 048
     Dates: start: 20081019
  6. ATELEC [Concomitant]
     Dosage: 20 MG
     Route: 048
     Dates: start: 20081019
  7. JUVELA NICOTINATE [Concomitant]
     Dosage: 600 MG
     Route: 048
     Dates: start: 20111111
  8. RASILEZ [Suspect]
     Indication: HYPERTENSION
     Dosage: 150 MG
     Route: 048
     Dates: start: 20110713, end: 20120604

REACTIONS (5)
  - SHOCK [None]
  - ANAEMIA [None]
  - GASTROINTESTINAL HAEMORRHAGE [None]
  - DELIRIUM [None]
  - BLOOD PRESSURE INADEQUATELY CONTROLLED [None]
